FAERS Safety Report 12747796 (Version 1)
Quarter: 2016Q3

REPORT INFORMATION
  Report Type: Spontaneous
  Country: US (occurrence: US)
  Receive Date: 20160915
  Receipt Date: 20160915
  Transmission Date: 20161109
  Serious: No
  Sender: FDA-Public Use
  Company Number: US-JAZZ-2016-US-010076

PATIENT
  Age: 45 Year
  Sex: Female

DRUGS (24)
  1. XYREM [Suspect]
     Active Substance: SODIUM OXYBATE
     Indication: CATAPLEXY
     Dosage: 3 G, BID
     Route: 048
     Dates: start: 201511, end: 201511
  2. IBUPROFEN. [Concomitant]
     Active Substance: IBUPROFEN
  3. FLUTICASONE PROPIONATE. [Concomitant]
     Active Substance: FLUTICASONE PROPIONATE
  4. FERROUS SULFATE. [Concomitant]
     Active Substance: FERROUS SULFATE
  5. VITAMIN B12 [Concomitant]
     Active Substance: CYANOCOBALAMIN
  6. VITAMIN C [Concomitant]
     Active Substance: ASCORBIC ACID
  7. XYREM [Suspect]
     Active Substance: SODIUM OXYBATE
     Dosage: 3.75 G, BID
     Route: 048
     Dates: start: 201511, end: 2016
  8. ACIDOPHILUS [Concomitant]
     Active Substance: LACTOBACILLUS ACIDOPHILUS
  9. VITAMIN D [Concomitant]
     Active Substance: CHOLECALCIFEROL
  10. ZOFRAN [Concomitant]
     Active Substance: ONDANSETRON HYDROCHLORIDE
  11. TOPIRAMATE. [Concomitant]
     Active Substance: TOPIRAMATE
  12. BACLOFEN. [Concomitant]
     Active Substance: BACLOFEN
  13. ONDANSETRON [Concomitant]
     Active Substance: ONDANSETRON
     Indication: NAUSEA
  14. XYREM [Suspect]
     Active Substance: SODIUM OXYBATE
     Indication: NARCOLEPSY
     Dosage: 2.25 G, BID
     Route: 048
     Dates: start: 201511, end: 201511
  15. IMITREX [Concomitant]
     Active Substance: SUMATRIPTAN SUCCINATE
  16. BOTOX [Concomitant]
     Active Substance: ONABOTULINUMTOXINA
  17. PRENATAL [Concomitant]
     Active Substance: VITAMINS
  18. FIORICET [Concomitant]
     Active Substance: ACETAMINOPHEN\BUTALBITAL\CAFFEINE
  19. BUTALBITAL, ACETAMINOPHEN, AND CAFFEINE [Concomitant]
     Active Substance: ACETAMINOPHEN\BUTALBITAL\CAFFEINE
  20. PATANOL [Concomitant]
     Active Substance: OLOPATADINE HYDROCHLORIDE
  21. CRANBERRY. [Concomitant]
     Active Substance: CRANBERRY
  22. RITALIN [Concomitant]
     Active Substance: METHYLPHENIDATE HYDROCHLORIDE
  23. VITAMIN D3 [Concomitant]
     Active Substance: CHOLECALCIFEROL
  24. CORTISONE ACETATE. [Concomitant]
     Active Substance: CORTISONE ACETATE

REACTIONS (1)
  - Palpitations [Not Recovered/Not Resolved]

NARRATIVE: CASE EVENT DATE: 201603
